FAERS Safety Report 20645107 (Version 1)
Quarter: 2022Q1

REPORT INFORMATION
  Report Type: Spontaneous
  Country: US (occurrence: None)
  Receive Date: 20220328
  Receipt Date: 20220328
  Transmission Date: 20220423
  Serious: No
  Sender: FDA-Public Use
  Company Number: None

PATIENT
  Sex: Male

DRUGS (1)
  1. MYCOPHENOLIC ACID [Suspect]
     Active Substance: MYCOPHENOLIC ACID
     Indication: Immune thrombocytopenia
     Dosage: FREQUENCY : TWICE A DAY;?
     Route: 048
     Dates: start: 20210920, end: 20220325

REACTIONS (2)
  - Disease progression [None]
  - Therapy cessation [None]
